FAERS Safety Report 7643444-7 (Version None)
Quarter: 2011Q3

REPORT INFORMATION
  Report Type: 
  Country: None (occurrence: None)
  Receive Date: 20110729
  Receipt Date: 20110719
  Transmission Date: 20111222
  Serious: Yes (Hospitalization)
  Sender: FDA-Public Use
  Company Number: FR-JNJFOC-20110708754

PATIENT
  Age: 10 Year
  Sex: Female

DRUGS (4)
  1. LEVOFLOXACIN [Suspect]
     Indication: BRAIN ABSCESS
     Route: 017
     Dates: start: 20110604, end: 20110606
  2. FLAGYL [Suspect]
     Indication: BRAIN ABSCESS
     Route: 048
     Dates: start: 20110607
  3. LEVOFLOXACIN [Suspect]
     Route: 048
     Dates: start: 20110607, end: 20110620
  4. METRONIDAZOLE [Suspect]
     Indication: BRAIN ABSCESS
     Route: 041
     Dates: start: 20110605, end: 20110606

REACTIONS (6)
  - ARTHRALGIA [None]
  - TENDONITIS [None]
  - JOINT EFFUSION [None]
  - TENDON DISORDER [None]
  - OFF LABEL USE [None]
  - INCORRECT ROUTE OF DRUG ADMINISTRATION [None]
